FAERS Safety Report 5721786-X (Version None)
Quarter: 2008Q2

REPORT INFORMATION
  Report Type: 
  Country: None (occurrence: None)
  Receive Date: 20080429
  Receipt Date: 20070405
  Transmission Date: 20081010
  Serious: No
  Sender: FDA-Public Use
  Company Number: US-ASTRAZENECA-2007UW06754

PATIENT
  Age: 78 Year
  Sex: Female
  Weight: 58.1 kg

DRUGS (7)
  1. NEXIUM [Suspect]
     Indication: HIATUS HERNIA
     Route: 048
     Dates: start: 20070301
  2. NEXIUM [Suspect]
     Indication: GASTRIC ULCER
     Route: 048
     Dates: start: 20070301
  3. NEXIUM [Suspect]
     Route: 048
     Dates: start: 20070301
  4. NEXIUM [Suspect]
     Route: 048
     Dates: start: 20070301
  5. TOPROL-XL [Concomitant]
  6. COMPOUNDED NATURAL HORMONES [Concomitant]
  7. CHINESE HERBS [Concomitant]

REACTIONS (4)
  - COUGH [None]
  - HEADACHE [None]
  - NASAL CONGESTION [None]
  - RESPIRATORY DISORDER [None]
